FAERS Safety Report 15904783 (Version 5)
Quarter: 2019Q2

REPORT INFORMATION
  Report Type: Report from Study
  Country: US (occurrence: US)
  Receive Date: 20190204
  Receipt Date: 20190508
  Transmission Date: 20190711
  Serious: No
  Sender: FDA-Public Use
  Company Number: PHEH2019US004551

PATIENT
  Age: 16 Year
  Sex: Male
  Weight: 85.45 kg

DRUGS (4)
  1. ILARIS [Suspect]
     Active Substance: CANAKINUMAB
     Dosage: 300 MG, Q4W
     Route: 058
  2. ILARIS [Suspect]
     Active Substance: CANAKINUMAB
     Dosage: 300 MG, Q4W
     Route: 058
  3. ILARIS [Suspect]
     Active Substance: CANAKINUMAB
     Dosage: 150 MG, QMO
     Route: 058
     Dates: start: 20180413, end: 20190430
  4. ILARIS [Suspect]
     Active Substance: CANAKINUMAB
     Indication: STILL^S DISEASE
     Dosage: 300 MG, Q4W
     Route: 058
     Dates: start: 20180430

REACTIONS (15)
  - Arthropod bite [Unknown]
  - Chills [Unknown]
  - Pruritus [Recovering/Resolving]
  - Decreased appetite [Unknown]
  - Pyrexia [Unknown]
  - Tremor [Unknown]
  - Asthenia [Recovering/Resolving]
  - Stress [Unknown]
  - Fatigue [Unknown]
  - Muscle fatigue [Recovering/Resolving]
  - Lymphadenopathy [Unknown]
  - Migraine [Unknown]
  - Vomiting [Unknown]
  - Pain [Recovering/Resolving]
  - Insomnia [Unknown]

NARRATIVE: CASE EVENT DATE: 20181012
